FAERS Safety Report 9850012 (Version 2)
Quarter: 2014Q1

REPORT INFORMATION
  Report Type: Report from Study
  Country: DE (occurrence: DE)
  Receive Date: 20140128
  Receipt Date: 20140312
  Transmission Date: 20141002
  Serious: Yes (Hospitalization, Other)
  Sender: FDA-Public Use
  Company Number: PHHY2014DE009507

PATIENT
  Sex: Female

DRUGS (3)
  1. FTY 720 [Suspect]
     Indication: MULTIPLE SCLEROSIS
     Dosage: 0.5 MG, QD
     Route: 048
     Dates: start: 20120509
  2. OXAZEPAM [Concomitant]
     Indication: RESTLESSNESS
     Dosage: 10 MG, PRN
     Route: 048
     Dates: start: 20130117, end: 20130301
  3. DOXEPIN [Concomitant]
     Indication: RESTLESSNESS
     Dosage: 10 MG, PRN
     Route: 048
     Dates: start: 20130117, end: 20130301

REACTIONS (1)
  - Vulval cancer [Not Recovered/Not Resolved]
